FAERS Safety Report 10626983 (Version 3)
Quarter: 2015Q1

REPORT INFORMATION
  Report Type: Report from Study
  Country: US (occurrence: US)
  Receive Date: 20141204
  Receipt Date: 20150107
  Transmission Date: 20150720
  Serious: Yes (Hospitalization)
  Sender: FDA-Public Use
  Company Number: US-ABBVIE-14K-163-1312521-00

PATIENT
  Age: 60 Year
  Sex: Female
  Weight: 61.29 kg

DRUGS (3)
  1. ELMIRON [Concomitant]
     Active Substance: PENTOSAN POLYSULFATE SODIUM
     Indication: BLADDER DISORDER
  2. HUMIRA [Suspect]
     Active Substance: ADALIMUMAB
     Indication: COLITIS ULCERATIVE
     Route: 058
     Dates: start: 20141015, end: 20141225
  3. PHENAZOPYRIDINE. [Concomitant]
     Active Substance: PHENAZOPYRIDINE
     Indication: DYSURIA

REACTIONS (9)
  - Haemoglobin decreased [Unknown]
  - Drug effect incomplete [Unknown]
  - Blood magnesium decreased [Unknown]
  - Diarrhoea [Unknown]
  - Dehydration [Not Recovered/Not Resolved]
  - Confusional state [Not Recovered/Not Resolved]
  - Tooth fracture [Not Recovered/Not Resolved]
  - Blood potassium decreased [Unknown]
  - Muscular weakness [Not Recovered/Not Resolved]

NARRATIVE: CASE EVENT DATE: 20141015
